FAERS Safety Report 7798180-3 (Version None)
Quarter: 2011Q4

REPORT INFORMATION
  Report Type: 
  Country: None (occurrence: None)
  Receive Date: 20111005
  Receipt Date: 20110927
  Transmission Date: 20120403
  Serious: Yes (Other)
  Sender: FDA-Public Use
  Company Number: US-ACTELION-A-US2011-54447

PATIENT

DRUGS (9)
  1. SYMBICORT [Concomitant]
  2. OXYGEN [Concomitant]
  3. DIGOXIN [Concomitant]
  4. EPOPROSTENOL SODIUM [Suspect]
     Indication: PULMONARY ARTERIAL HYPERTENSION
     Dosage: 15.5 NG/KG, PER MIN
     Route: 042
     Dates: start: 20110831
  5. LASIX [Concomitant]
  6. VENTOLIN HFA [Concomitant]
  7. PRADAXA [Concomitant]
  8. SILDENAFIL CITRATE [Concomitant]
  9. ALDACTONE [Concomitant]

REACTIONS (3)
  - HEART RATE ABNORMAL [None]
  - FLUSHING [None]
  - DIARRHOEA [None]
